FAERS Safety Report 24149937 (Version 1)
Quarter: 2024Q3

REPORT INFORMATION
  Report Type: Spontaneous
  Country: CN (occurrence: CN)
  Receive Date: 20240730
  Receipt Date: 20240730
  Transmission Date: 20241016
  Serious: Yes (Congenital Anomaly)
  Sender: ROCHE
  Company Number: CN-002147023-NVSC2024CN150940

PATIENT
  Age: 39 Year
  Sex: Female
  Weight: 73 kg

DRUGS (1)
  1. XOLAIR [Suspect]
     Active Substance: OMALIZUMAB
     Indication: Urticaria chronic
     Dosage: 150 MG (2 SET)
     Route: 050
     Dates: start: 202401

REACTIONS (4)
  - Ectopic pregnancy [Unknown]
  - Maternal exposure during pregnancy [Unknown]
  - Abortion spontaneous [Unknown]
  - Off label use [Unknown]
